FAERS Safety Report 16169071 (Version 1)
Quarter: 2019Q2

REPORT INFORMATION
  Report Type: Spontaneous
  Country: US (occurrence: US)
  Receive Date: 20190406
  Receipt Date: 20190406
  Transmission Date: 20190711
  Serious: Yes (Disabling)
  Sender: FDA-Public Use
  Company Number: None

PATIENT
  Age: 60 Year
  Sex: Female
  Weight: 67.5 kg

DRUGS (1)
  1. CIPRO [Suspect]
     Active Substance: CIPROFLOXACIN HYDROCHLORIDE
     Indication: DIVERTICULITIS
     Route: 048
     Dates: start: 20180305, end: 20180310

REACTIONS (6)
  - Product complaint [None]
  - Arthralgia [None]
  - Neuropathy peripheral [None]
  - Tendonitis [None]
  - Joint noise [None]
  - Gait disturbance [None]

NARRATIVE: CASE EVENT DATE: 20180305
